FAERS Safety Report 4981968-1 (Version None)
Quarter: 2006Q2

REPORT INFORMATION
  Report Type: 
  Country: None (occurrence: None)
  Receive Date: 20060424
  Receipt Date: 20060424
  Transmission Date: 20061013
  Serious: No
  Sender: FDA-Public Use
  Company Number: None

PATIENT
  Age: 45 Year
  Sex: Male
  Weight: 49.8957 kg

DRUGS (1)
  1. ZICAM NASAL SPRAY [Suspect]
     Indication: NASOPHARYNGITIS
     Dosage: 1 OR 2 SPRAYS TO EACH NOSTRIL 2-3 X NASAL
     Route: 045
     Dates: start: 20040202, end: 20040205

REACTIONS (2)
  - ANOSMIA [None]
  - HYPOSMIA [None]
